FAERS Safety Report 20626039 (Version 3)
Quarter: 2022Q2

REPORT INFORMATION
  Report Type: Report from Study
  Country: IT (occurrence: IT)
  Receive Date: 20220323
  Receipt Date: 20220418
  Transmission Date: 20220721
  Serious: Yes (Other)
  Sender: FDA-Public Use
  Company Number: IT-ABBVIE-22K-083-4324821-00

PATIENT
  Age: 55 Year
  Sex: Female
  Weight: 55 kg

DRUGS (6)
  1. UPADACITINIB [Suspect]
     Active Substance: UPADACITINIB
     Indication: Product used for unknown indication
     Route: 048
     Dates: start: 20211206, end: 20211225
  2. SARS-COV-2 VACCINE [Concomitant]
     Indication: COVID-19 immunisation
     Dosage: DONE IN JUN-2021
     Route: 030
     Dates: start: 202106, end: 202106
  3. METHOTREXATE [Concomitant]
     Active Substance: METHOTREXATE
     Indication: Rheumatoid arthritis
     Dosage: 7.5 MG WEEKLY
     Route: 058
     Dates: start: 20211206
  4. FOLIC ACID [Concomitant]
     Active Substance: FOLIC ACID
     Indication: Vitamin supplementation
     Dosage: 5 MG WEEKLY
     Route: 048
     Dates: start: 20211206
  5. URSODIOL [Concomitant]
     Active Substance: URSODIOL
     Indication: Hypertransaminasaemia
     Dosage: 450 MG/TWICE A DAY
     Route: 048
     Dates: start: 2021
  6. ATORVASTATIN [Concomitant]
     Active Substance: ATORVASTATIN
     Indication: Dyslipidaemia
     Route: 048
     Dates: start: 2021

REACTIONS (1)
  - Dermatitis exfoliative generalised [Recovered/Resolved]

NARRATIVE: CASE EVENT DATE: 20211216
